FAERS Safety Report 5693139-4 (Version None)
Quarter: 2008Q2

REPORT INFORMATION
  Report Type: 
  Country: None (occurrence: None)
  Receive Date: 20080402
  Receipt Date: 20080402
  Transmission Date: 20081010
  Serious: Yes (Hospitalization)
  Sender: FDA-Public Use
  Company Number: None

PATIENT
  Age: 22 Year
  Sex: Female
  Weight: 47.6277 kg

DRUGS (1)
  1. SUDAFED 12 HOUR [Suspect]
     Indication: SINUSITIS
     Dosage: ONE TABLET ONCE PO
     Route: 048
     Dates: start: 20080401, end: 20080401

REACTIONS (4)
  - APHASIA [None]
  - COORDINATION ABNORMAL [None]
  - FALL [None]
  - SYNCOPE [None]
